FAERS Safety Report 10925838 (Version 1)
Quarter: 2015Q1

REPORT INFORMATION
  Report Type: Spontaneous
  Country: US (occurrence: US)
  Receive Date: 20150318
  Receipt Date: 20150318
  Transmission Date: 20150721
  Serious: Yes (Death, Hospitalization, Other)
  Sender: FDA-Public Use
  Company Number: 2013164535

PATIENT

DRUGS (7)
  1. BACTRIM DS [Suspect]
     Active Substance: SULFAMETHOXAZOLE\TRIMETHOPRIM
     Indication: SKIN ULCER
     Dosage: 1 DF, BID
     Route: 048
     Dates: start: 20130408, end: 2013
  2. ERGOCALCIFEROL 50,000 IU CAPSULES [Concomitant]
     Indication: PRODUCT USED FOR UNKNOWN INDICATION
     Dosage: 50000 NG, 1DOSE/MONTH
     Route: 048
  3. TOFACITINIB 5 MG [Concomitant]
     Indication: RHEUMATOID ARTHRITIS
     Dosage: 5 MG, BID
     Route: 048
     Dates: start: 2013
  4. DESIPRAMINE 10 MG [Concomitant]
     Indication: PRODUCT USED FOR UNKNOWN INDICATION
     Dosage: 10 MG, BID
     Route: 048
  5. HYDROCHLOROTHIAZIDE-LISINOPRIL 12.5 MG/ 20 MG [Concomitant]
     Indication: PRODUCT USED FOR UNKNOWN INDICATION
     Dosage: 1 DF, UNK
     Route: 048
  6. LEFLUNAMIDE [Concomitant]
     Indication: RHEUMATOID ARTHRITIS
     Dosage: 20 MG, OD
     Route: 048
     Dates: start: 2013
  7. SERTRALINE 100 MG [Concomitant]
     Indication: PRODUCT USED FOR UNKNOWN INDICATION
     Dosage: 100 MG, BID
     Route: 048

REACTIONS (30)
  - Cerebellar infarction [Unknown]
  - Delirium [Unknown]
  - Gastrointestinal haemorrhage [Unknown]
  - Blood phosphorus increased [Unknown]
  - Drug dependence [Unknown]
  - Peripheral swelling [Unknown]
  - Hypokalaemia [Unknown]
  - Blood alkaline phosphatase increased [Unknown]
  - Staphylococcal sepsis [Fatal]
  - Seizure [Unknown]
  - Electroencephalogram abnormal [None]
  - Metabolic disorder [Fatal]
  - Septic shock [Unknown]
  - Haemoglobin decreased [Recovered/Resolved]
  - Blood calcium decreased [Unknown]
  - Mental status changes [Unknown]
  - Pain [Unknown]
  - Blood uric acid increased [Unknown]
  - Protein total decreased [Unknown]
  - Blood bilirubin increased [Unknown]
  - Gastritis [None]
  - Purulent discharge [Recovered/Resolved]
  - Haematemesis [Unknown]
  - Hyponatraemia [Recovered/Resolved]
  - Asthenia [Unknown]
  - Platelet count decreased [Unknown]
  - Acute respiratory failure [Unknown]
  - Cerebral thrombosis [Unknown]
  - Diarrhoea [Unknown]
  - Stress ulcer [None]

NARRATIVE: CASE EVENT DATE: 201304
